FAERS Safety Report 20095260 (Version 1)
Quarter: 2021Q4

REPORT INFORMATION
  Report Type: Spontaneous
  Country: CH (occurrence: CH)
  Receive Date: 20211122
  Receipt Date: 20211122
  Transmission Date: 20220303
  Serious: Yes (Other)
  Sender: FDA-Public Use
  Company Number: None

PATIENT
  Age: 37 Year
  Sex: Male

DRUGS (2)
  1. SUMATRIPTAN SUCCINATE [Suspect]
     Active Substance: SUMATRIPTAN SUCCINATE
     Indication: Cluster headache
     Dosage: 6 MG, QD IN TOTAL
     Route: 058
     Dates: start: 20211030, end: 20211030
  2. PREDNISONE [Concomitant]
     Active Substance: PREDNISONE
     Indication: Cluster headache
     Dosage: 20 MG, BID
     Route: 065
     Dates: start: 20211028

REACTIONS (7)
  - Pain in extremity [Recovered/Resolved]
  - Musculoskeletal stiffness [Recovered/Resolved]
  - Tremor [Recovered/Resolved]
  - Abdominal pain [Recovered/Resolved]
  - Joint stiffness [Recovered/Resolved]
  - Chest discomfort [Recovered/Resolved]
  - Dry throat [Recovered/Resolved]

NARRATIVE: CASE EVENT DATE: 20211030
